FAERS Safety Report 15725684 (Version 3)
Quarter: 2019Q1

REPORT INFORMATION
  Report Type: Report from Study
  Country: US (occurrence: US)
  Receive Date: 20181215
  Receipt Date: 20190104
  Transmission Date: 20190417
  Serious: Yes (Hospitalization)
  Sender: FDA-Public Use
  Company Number: US-ACTELION-A-NJ2017-163439

PATIENT
  Age: 70 Year
  Sex: Female
  Weight: 81.18 kg

DRUGS (8)
  1. UPTRAVI [Suspect]
     Active Substance: SELEXIPAG
     Dosage: 200 MCG, BID
     Route: 048
  2. UPTRAVI [Suspect]
     Active Substance: SELEXIPAG
     Dosage: 400 MCG, BID
     Route: 048
  3. REVATIO [Concomitant]
     Active Substance: SILDENAFIL CITRATE
  4. LETAIRIS [Concomitant]
     Active Substance: AMBRISENTAN
  5. UPTRAVI [Suspect]
     Active Substance: SELEXIPAG
     Dosage: 1600 MCG, BID
     Route: 048
  6. COUMADIN [Concomitant]
     Active Substance: WARFARIN SODIUM
  7. UPTRAVI [Suspect]
     Active Substance: SELEXIPAG
     Indication: PULMONARY ARTERIAL HYPERTENSION
     Dosage: 800 MCG, BID
     Route: 048
  8. UPTRAVI [Suspect]
     Active Substance: SELEXIPAG
     Dosage: 600 MCG, QD, 200 MCG QAM, 400 MCG QPM
     Route: 048

REACTIONS (21)
  - Fatigue [Unknown]
  - Pain [Unknown]
  - Abdominal pain upper [Unknown]
  - Nausea [Unknown]
  - Cough [Unknown]
  - Ageusia [Unknown]
  - Headache [Unknown]
  - Muscle spasms [Recovered/Resolved]
  - Chest pain [Unknown]
  - Nasopharyngitis [Unknown]
  - Lung disorder [Unknown]
  - Back pain [Unknown]
  - Dyspnoea [Unknown]
  - Somnolence [Unknown]
  - Diarrhoea [Unknown]
  - Alopecia [Unknown]
  - Insomnia [Unknown]
  - Dyspepsia [Unknown]
  - Decreased appetite [Unknown]
  - Feeling abnormal [Recovered/Resolved]
  - Abdominal pain [Unknown]
